FAERS Safety Report 8382612-6 (Version None)
Quarter: 2012Q2

REPORT INFORMATION
  Report Type: 
  Country: None (occurrence: None)
  Receive Date: 20120522
  Receipt Date: 20110615
  Transmission Date: 20120825
  Serious: Yes (Other)
  Sender: FDA-Public Use
  Company Number: 2011-02650

PATIENT
  Age: 64 Year
  Sex: Male

DRUGS (1)
  1. IMMUCYST [Suspect]
     Indication: PRODUCT USED FOR UNKNOWN INDICATION
     Dosage: 81.0 MG

REACTIONS (4)
  - HYPERTONIC BLADDER [None]
  - HAEMATURIA [None]
  - BACK PAIN [None]
  - BLADDER PAIN [None]
